FAERS Safety Report 14334095 (Version 3)
Quarter: 2018Q1

REPORT INFORMATION
  Report Type: Spontaneous
  Country: DK (occurrence: DK)
  Receive Date: 20171228
  Receipt Date: 20180306
  Transmission Date: 20180509
  Serious: Yes (Hospitalization)
  Sender: FDA-Public Use
  Company Number: DK-ELI_LILLY_AND_COMPANY-DK201712008162

PATIENT
  Age: 25 Year
  Sex: Female
  Weight: 65 kg

DRUGS (4)
  1. PAMOL [Concomitant]
     Active Substance: ACETAMINOPHEN
     Indication: PAIN
     Dosage: 1000 MG, PRN
     Route: 048
  2. CYMBALTA [Suspect]
     Active Substance: DULOXETINE HYDROCHLORIDE
     Indication: DEPRESSION
     Dosage: UNK UNK, UNKNOWN
     Route: 048
     Dates: end: 20110703
  3. SEROQUEL [Suspect]
     Active Substance: QUETIAPINE FUMARATE
     Indication: INSOMNIA
     Dosage: 50 MG, DAILY
     Route: 048
  4. CODEINE [Concomitant]
     Active Substance: CODEINE
     Indication: PAIN
     Dosage: UNK UNK, UNKNOWN
     Route: 065
     Dates: start: 2012, end: 2013

REACTIONS (29)
  - Thyroid disorder [Not Recovered/Not Resolved]
  - Burning sensation [Recovering/Resolving]
  - Dry mouth [Not Recovered/Not Resolved]
  - Neuroleptic malignant syndrome [Recovering/Resolving]
  - Social avoidant behaviour [Unknown]
  - Pyrexia [Recovering/Resolving]
  - Suicidal ideation [Recovered/Resolved]
  - Dysuria [Not Recovered/Not Resolved]
  - Musculoskeletal discomfort [Not Recovered/Not Resolved]
  - Dyspnoea [Recovering/Resolving]
  - Somnolence [Not Recovered/Not Resolved]
  - Movement disorder [Recovering/Resolving]
  - Haemorrhagic diathesis [Recovering/Resolving]
  - Suicidal behaviour [Recovered/Resolved]
  - Dyskinesia [Not Recovered/Not Resolved]
  - Syncope [Not Recovered/Not Resolved]
  - Heart rate increased [Recovering/Resolving]
  - Abnormal dreams [Not Recovered/Not Resolved]
  - Irritability [Not Recovered/Not Resolved]
  - Speech disorder [Recovering/Resolving]
  - Hyperhidrosis [Recovering/Resolving]
  - Seizure [Not Recovered/Not Resolved]
  - Orthostatic hypotension [Recovering/Resolving]
  - Palpitations [Recovering/Resolving]
  - Weight increased [Not Recovered/Not Resolved]
  - Vision blurred [Not Recovered/Not Resolved]
  - Dizziness [Not Recovered/Not Resolved]
  - Tooth disorder [Not Recovered/Not Resolved]
  - Muscular weakness [Recovering/Resolving]

NARRATIVE: CASE EVENT DATE: 20010513
